FAERS Safety Report 5870708-X (Version None)
Quarter: 2008Q3

REPORT INFORMATION
  Report Type: 
  Country: None (occurrence: None)
  Receive Date: 20080904
  Receipt Date: 20080904
  Transmission Date: 20090109
  Serious: Yes (Hospitalization)
  Sender: FDA-Public Use
  Company Number: PHEH1996US07556

PATIENT
  Sex: Male
  Weight: 87.7 kg

DRUGS (7)
  1. NEORAL [Suspect]
     Route: 048
     Dates: start: 19950804
  2. PREDNISONE [Concomitant]
     Dosage: UNSPECIFIED
     Route: 065
  3. IMURAN [Concomitant]
     Dosage: UNSPECIFIED
     Route: 065
  4. PROCARDIA XL [Concomitant]
  5. PEPCID [Concomitant]
  6. SEPTRA [Concomitant]
  7. LASIX [Concomitant]

REACTIONS (3)
  - BODY TEMPERATURE INCREASED [None]
  - CHILLS [None]
  - UPPER RESPIRATORY TRACT INFECTION [None]
